FAERS Safety Report 7859646-0 (Version None)
Quarter: 2011Q4

REPORT INFORMATION
  Report Type: 
  Country: None (occurrence: None)
  Receive Date: 20111027
  Receipt Date: 20111019
  Transmission Date: 20120403
  Serious: Yes (Hospitalization)
  Sender: FDA-Public Use
  Company Number: US-BAYER-2011-101656

PATIENT
  Sex: Female

DRUGS (3)
  1. CORTICOSTEROIDS [Suspect]
     Route: 042
  2. BETASERON [Suspect]
     Dosage: UNK
     Dates: end: 20090101
  3. BETASERON [Suspect]
     Dosage: UNK
     Dates: start: 20090101

REACTIONS (2)
  - HALLUCINATION [None]
  - CONVULSION [None]
